FAERS Safety Report 9583449 (Version 1)
Quarter: 2013Q4

REPORT INFORMATION
  Report Type: Spontaneous
  Country: US (occurrence: US)
  Receive Date: 20131002
  Receipt Date: 20131002
  Transmission Date: 20140711
  Serious: No
  Sender: FDA-Public Use
  Company Number: US-AMGEN-USASP2013046907

PATIENT
  Age: 46 Year
  Sex: Female
  Weight: 58.96 kg

DRUGS (7)
  1. ENBREL [Suspect]
     Indication: ANKYLOSING SPONDYLITIS
     Dosage: UNK
     Route: 065
     Dates: start: 201305, end: 201305
  2. CELEBREX [Concomitant]
     Dosage: UNK
  3. ALDACTONE                          /00006201/ [Concomitant]
     Dosage: UNK
  4. ELAVIL                             /00002202/ [Concomitant]
     Dosage: UNK
  5. LORTAB                             /00607101/ [Concomitant]
     Dosage: UNK
  6. VITAMIN D                          /00107901/ [Concomitant]
     Dosage: UNK
  7. ZOCOR [Concomitant]
     Dosage: UNK

REACTIONS (4)
  - Drug hypersensitivity [Not Recovered/Not Resolved]
  - Injection site erythema [Not Recovered/Not Resolved]
  - Injection site rash [Not Recovered/Not Resolved]
  - Injection site warmth [Not Recovered/Not Resolved]
